FAERS Safety Report 23563165 (Version 5)
Quarter: 2025Q4

REPORT INFORMATION
  Report Type: Spontaneous
  Country: US (occurrence: US)
  Receive Date: 20240226
  Receipt Date: 20251119
  Transmission Date: 20260118
  Serious: No
  Sender: SANOFI AVENTIS
  Company Number: US-SA-SAC20240221000050

PATIENT
  Age: 16 Year
  Sex: Male

DRUGS (2)
  1. DUPIXENT [Suspect]
     Active Substance: DUPILUMAB
     Indication: Dermatitis atopic
     Dosage: 600 MG, 1X
     Route: 058
     Dates: start: 20240131, end: 20240131
  2. DUPIXENT [Suspect]
     Active Substance: DUPILUMAB
     Indication: Eczema
     Dosage: 300 MG, QOW
     Route: 058
     Dates: start: 202401, end: 202506

REACTIONS (9)
  - Acne [Recovered/Resolved]
  - Eyelid skin dryness [Recovered/Resolved]
  - Condition aggravated [Recovered/Resolved]
  - Skin irritation [Unknown]
  - Hyperhidrosis [Unknown]
  - Oropharyngeal discomfort [Recovering/Resolving]
  - Rash [Recovering/Resolving]
  - Incorrect dose administered [Unknown]
  - Drug ineffective [Unknown]

NARRATIVE: CASE EVENT DATE: 20240101
